FAERS Safety Report 15653853 (Version 1)
Quarter: 2018Q4

REPORT INFORMATION
  Report Type: Spontaneous
  Country: US (occurrence: US)
  Receive Date: 20181123
  Receipt Date: 20181123
  Transmission Date: 20190205
  Serious: Yes (Life-Threatening, Disabling, Other)
  Sender: FDA-Public Use
  Company Number: None

PATIENT
  Sex: Female
  Weight: 136.53 kg

DRUGS (1)
  1. NEXPLANON [Suspect]
     Active Substance: ETONOGESTREL
     Dates: start: 20181115, end: 20181120

REACTIONS (6)
  - Implant site swelling [None]
  - Erythema [None]
  - Purulent discharge [None]
  - Implant site bruising [None]
  - Implant site induration [None]
  - Implant site discharge [None]
